FAERS Safety Report 7247130-7 (Version None)
Quarter: 2011Q1

REPORT INFORMATION
  Report Type: 
  Country: None (occurrence: None)
  Receive Date: 20110127
  Receipt Date: 20100818
  Transmission Date: 20110831
  Serious: No
  Sender: FDA-Public Use
  Company Number: US-BAUSCH-2010BL004654

PATIENT
  Sex: Female

DRUGS (4)
  1. ALAWAY [Suspect]
     Indication: EYE ALLERGY
     Route: 047
     Dates: start: 20100815, end: 20100801
  2. ALAWAY [Suspect]
     Route: 047
     Dates: start: 20100507, end: 20100101
  3. ALAWAY [Suspect]
     Route: 047
     Dates: start: 20100507, end: 20100101
  4. ALAWAY [Suspect]
     Indication: EYE PRURITUS
     Route: 047
     Dates: start: 20100815, end: 20100801

REACTIONS (1)
  - BACTERIAL INFECTION [None]
